FAERS Safety Report 19328202 (Version 3)
Quarter: 2021Q2

REPORT INFORMATION
  Report Type: Spontaneous
  Country: AM (occurrence: AM)
  Receive Date: 20210528
  Receipt Date: 20210622
  Transmission Date: 20210717
  Serious: Yes (Death, Other)
  Sender: FDA-Public Use
  Company Number: AM-ROCHE-2838910

PATIENT
  Sex: Male
  Weight: 60 kg

DRUGS (6)
  1. ACTEMRA [Suspect]
     Active Substance: TOCILIZUMAB
     Indication: COVID-19
     Dosage: FIRST INJECTION WAS PERFORMED ON 20/MAY/2021 400MG IV AND NEXT 400MG ON 21/MAY/2021.?OTHER DOSAGE :
     Route: 042
  2. PARACETAMOL [Concomitant]
     Active Substance: ACETAMINOPHEN
     Route: 048
  3. VITAMIN C [Concomitant]
     Active Substance: ASCORBIC ACID
     Route: 048
  4. CLEXANE [Concomitant]
     Active Substance: ENOXAPARIN SODIUM
     Dosage: 0.6
     Route: 058
  5. DEXAMETHAZON [Concomitant]
     Active Substance: DEXAMETHASONE
     Route: 042
  6. CEFTRIAXONE. [Concomitant]
     Active Substance: CEFTRIAXONE
     Route: 042

REACTIONS (3)
  - Cardiopulmonary failure [Fatal]
  - Off label use [Unknown]
  - COVID-19 pneumonia [Unknown]
